FAERS Safety Report 6165848-4 (Version None)
Quarter: 2009Q2

REPORT INFORMATION
  Report Type: 
  Country: None (occurrence: None)
  Receive Date: 20090422
  Receipt Date: 20090408
  Transmission Date: 20091009
  Serious: Yes (Life-Threatening)
  Sender: FDA-Public Use
  Company Number: 2009S1006518

PATIENT
  Age: 10 Year
  Sex: Male
  Weight: 20.4 kg

DRUGS (1)
  1. BACLOFEN [Suspect]
     Indication: MUSCLE SPASMS
     Dosage: 10 ML
     Dates: start: 20050101

REACTIONS (2)
  - APNOEA [None]
  - STRIDOR [None]
